FAERS Safety Report 7795897-1 (Version None)
Quarter: 2011Q4

REPORT INFORMATION
  Report Type: 
  Country: None (occurrence: None)
  Receive Date: 20111004
  Receipt Date: 20110923
  Transmission Date: 20120403
  Serious: Yes (Other)
  Sender: FDA-Public Use
  Company Number: US-ASTRAZENECA-2011SE57452

PATIENT
  Age: 50 Year
  Sex: Female
  Weight: 70.3 kg

DRUGS (5)
  1. TOPRAMAX [Concomitant]
  2. XANAX [Concomitant]
  3. PRIVASTAT [Concomitant]
  4. AMBIEN [Concomitant]
  5. SEROQUEL [Suspect]
     Indication: BIPOLAR DISORDER
     Dosage: SPLITS TABLET TO TAKE 150 MG TWICE A DAY
     Route: 048
     Dates: start: 20070101

REACTIONS (2)
  - OFF LABEL USE [None]
  - BREAST CANCER [None]
